FAERS Safety Report 7371401-7 (Version None)
Quarter: 2011Q1

REPORT INFORMATION
  Report Type: 
  Country: None (occurrence: None)
  Receive Date: 20110321
  Receipt Date: 20110321
  Transmission Date: 20110831
  Serious: Yes (Other)
  Sender: FDA-Public Use
  Company Number: None

PATIENT
  Age: 68 Year
  Sex: Male
  Weight: 48.9885 kg

DRUGS (2)
  1. IPRATROPIUM BROMIDE [Suspect]
  2. ALBUTEROL SULFATE [Suspect]

REACTIONS (10)
  - BACK PAIN [None]
  - DYSPEPSIA [None]
  - ACCIDENTAL EXPOSURE [None]
  - DYSURIA [None]
  - UNEVALUABLE EVENT [None]
  - THROAT IRRITATION [None]
  - MUSCULAR WEAKNESS [None]
  - RESPIRATORY FUME INHALATION DISORDER [None]
  - OROPHARYNGEAL PAIN [None]
  - POLLAKIURIA [None]
